FAERS Safety Report 18490122 (Version 2)
Quarter: 2020Q4

REPORT INFORMATION
  Report Type: Spontaneous
  Country: PL (occurrence: PL)
  Receive Date: 20201111
  Receipt Date: 20201119
  Transmission Date: 20210114
  Serious: Yes (Hospitalization, Other)
  Sender: FDA-Public Use
  Company Number: NVSC2020PL281153

PATIENT
  Age: 66 Year
  Sex: Female

DRUGS (1)
  1. IMATINIB. [Suspect]
     Active Substance: IMATINIB MESYLATE
     Indication: GASTROINTESTINAL STROMAL TUMOUR
     Dosage: 400 MG, QD
     Route: 048
     Dates: start: 201808, end: 202004

REACTIONS (13)
  - Peripheral swelling [Unknown]
  - Lichen planus [Recovering/Resolving]
  - Toxicity to various agents [Unknown]
  - Skin lesion [Unknown]
  - Skin erosion [Unknown]
  - Asthenia [Unknown]
  - Off label use [Unknown]
  - Rash papular [Unknown]
  - Interstitial lung disease [Unknown]
  - Exercise tolerance decreased [Unknown]
  - Rash pruritic [Unknown]
  - Dyspnoea exertional [Unknown]
  - Rash erythematous [Unknown]

NARRATIVE: CASE EVENT DATE: 2018
